FAERS Safety Report 12992995 (Version 2)
Quarter: 2017Q1

REPORT INFORMATION
  Report Type: Spontaneous
  Country: US (occurrence: US)
  Receive Date: 20161202
  Receipt Date: 20170206
  Transmission Date: 20170428
  Serious: Yes (Hospitalization, Other)
  Sender: FDA-Public Use
  Company Number: US-AUROBINDO-AUR-APL-2016-14534

PATIENT
  Age: 59 Year
  Sex: Female

DRUGS (1)
  1. DIVALPROEX [Suspect]
     Active Substance: DIVALPROEX SODIUM
     Indication: PRODUCT USED FOR UNKNOWN INDICATION
     Dosage: UNK
     Route: 065

REACTIONS (15)
  - Somnolence [Recovering/Resolving]
  - Leukocytosis [Unknown]
  - Toxicity to various agents [Unknown]
  - Asthenia [Unknown]
  - Pyuria [Unknown]
  - Confusional state [Unknown]
  - Hepatic steatosis [Unknown]
  - Hyperammonaemic encephalopathy [Recovering/Resolving]
  - Abdominal tenderness [Unknown]
  - Cystitis [Unknown]
  - Tremor [Recovering/Resolving]
  - Mental status changes [Unknown]
  - Asterixis [Recovering/Resolving]
  - Acute kidney injury [Unknown]
  - Nausea [Unknown]
